FAERS Safety Report 19048076 (Version 1)
Quarter: 2021Q1

REPORT INFORMATION
  Report Type: Spontaneous
  Country: BG (occurrence: BG)
  Receive Date: 20210323
  Receipt Date: 20210323
  Transmission Date: 20210420
  Serious: Yes (Other)
  Sender: FDA-Public Use
  Company Number: BG-UCBSA-2021012644

PATIENT
  Age: 52 Year
  Sex: Female

DRUGS (6)
  1. BRIVARACETAM [Suspect]
     Active Substance: BRIVARACETAM
     Indication: PARTIAL SEIZURES
     Dosage: 200 MILLIGRAM, 2X/2 DAYS
     Dates: start: 202010
  2. LEVETIRACETAM. [Suspect]
     Active Substance: LEVETIRACETAM
     Indication: PARTIAL SEIZURES
     Dosage: 3000 MILLIGRAM, UNK
     Dates: start: 201205
  3. VALPROIC ACID. [Concomitant]
     Active Substance: VALPROIC ACID
     Indication: PARTIAL SEIZURES
     Dosage: 1500 MILLIGRAM, UNK
     Dates: start: 201202
  4. BRIVARACETAM [Suspect]
     Active Substance: BRIVARACETAM
     Dosage: 150MG (50MG IN THE MORNING AND 100 MG IN THE NIGHT)
     Dates: start: 202102
  5. OXCARBAMAZEPINE [Concomitant]
     Active Substance: OXCARBAZEPINE
     Indication: PARTIAL SEIZURES
     Dosage: 1200 MILLIGRAM, UNK
     Dates: start: 201202
  6. ESLICARBAZEPINE [Concomitant]
     Active Substance: ESLICARBAZEPINE
     Indication: PARTIAL SEIZURES
     Dosage: 800 MILLIGRAM, UNK
     Dates: start: 202010

REACTIONS (6)
  - Memory impairment [Unknown]
  - Product use issue [Unknown]
  - Headache [Unknown]
  - Disturbance in attention [Unknown]
  - Fatigue [Unknown]
  - Somnolence [Unknown]
